FAERS Safety Report 23605488 (Version 2)
Quarter: 2024Q1

REPORT INFORMATION
  Report Type: Spontaneous
  Country: US (occurrence: US)
  Receive Date: 20240307
  Receipt Date: 20240320
  Transmission Date: 20240410
  Serious: Yes (Disabling)
  Sender: FDA-Public Use
  Company Number: US-SA-SAC20240306000098

PATIENT
  Age: 60 Year
  Sex: Female
  Weight: 87.99 kg

DRUGS (9)
  1. DUPIXENT [Suspect]
     Active Substance: DUPILUMAB
     Indication: Asthma
     Dosage: 300 MG, QOW
     Route: 058
     Dates: start: 202310
  2. BENADRYL [Concomitant]
     Active Substance: DIPHENHYDRAMINE HYDROCHLORIDE
  3. IBUPROFEN [Concomitant]
     Active Substance: IBUPROFEN
  4. ANASTROZOLE [Concomitant]
     Active Substance: ANASTROZOLE
  5. POTASSIUM [Concomitant]
     Active Substance: POTASSIUM
  6. DILTIAZEM [Concomitant]
     Active Substance: DILTIAZEM
  7. DILTIAZEM [Concomitant]
     Active Substance: DILTIAZEM
  8. PULMICORT TURBUHALER [Concomitant]
     Active Substance: BUDESONIDE
  9. TRELEGY ELLIPTA [Concomitant]
     Active Substance: FLUTICASONE FUROATE\UMECLIDINIUM BROMIDE\VILANTEROL TRIFENATATE

REACTIONS (8)
  - Loss of personal independence in daily activities [Not Recovered/Not Resolved]
  - Headache [Recovered/Resolved]
  - Eye swelling [Recovered/Resolved]
  - Dry eye [Recovering/Resolving]
  - Asthma [Not Recovered/Not Resolved]
  - Therapeutic response decreased [Not Recovered/Not Resolved]
  - Dyspnoea [Not Recovered/Not Resolved]
  - Inappropriate schedule of product administration [Unknown]

NARRATIVE: CASE EVENT DATE: 20231001
